FAERS Safety Report 5956035-0 (Version None)
Quarter: 2008Q4

REPORT INFORMATION
  Report Type: 
  Country: None (occurrence: None)
  Receive Date: 20081112
  Receipt Date: 20081027
  Transmission Date: 20090506
  Serious: Yes (Other)
  Sender: FDA-Public Use
  Company Number: 2008S1019439

PATIENT
  Age: 42 Year
  Sex: Male

DRUGS (5)
  1. CIPROFLOXACIN [Suspect]
     Indication: OSTEOMYELITIS
  2. LINEZOLID [Suspect]
     Indication: OSTEOMYELITIS
  3. MEROPENEM (MEROPENEM) [Suspect]
     Indication: OSTEOMYELITIS
  4. PRISTINAMYCIN (PRISTINAMYCIN) [Suspect]
     Indication: OSTEOMYELITIS
  5. CANCOMYCIN (VANCOMYCIN) [Suspect]
     Indication: OSTEOMYELITIS

REACTIONS (2)
  - MULTIPLE-DRUG RESISTANCE [None]
  - TREATMENT FAILURE [None]
